FAERS Safety Report 5808772-6 (Version None)
Quarter: 2008Q3

REPORT INFORMATION
  Report Type: 
  Country: None (occurrence: None)
  Receive Date: 20080710
  Receipt Date: 20080710
  Transmission Date: 20090109
  Serious: Yes (Hospitalization)
  Sender: FDA-Public Use
  Company Number: None

PATIENT
  Sex: Female
  Weight: 68.63 kg

DRUGS (2)
  1. CARBOPLATIN [Suspect]
     Dosage: 462 MG
     Dates: start: 20061109, end: 20061109
  2. TAXOL [Suspect]
     Dosage: 306 MG
     Dates: end: 20061109

REACTIONS (6)
  - CHILLS [None]
  - CLOSTRIDIUM DIFFICILE COLITIS [None]
  - ELECTROLYTE IMBALANCE [None]
  - FEBRILE NEUTROPENIA [None]
  - PAIN [None]
  - PANCYTOPENIA [None]
